FAERS Safety Report 5831846-0 (Version None)
Quarter: 2008Q3

REPORT INFORMATION
  Report Type: 
  Country: None (occurrence: None)
  Receive Date: 20080804
  Receipt Date: 20080722
  Transmission Date: 20090109
  Serious: Yes (Hospitalization)
  Sender: FDA-Public Use
  Company Number: JP-PFIZER INC-2007091821

PATIENT
  Age: 51 Year
  Sex: Male

DRUGS (8)
  1. ZITHROMAX [Suspect]
     Indication: OPPORTUNISTIC INFECTION PROPHYLAXIS
     Route: 048
  2. ZITHROMAX [Suspect]
     Indication: MYCOBACTERIUM AVIUM COMPLEX INFECTION
     Route: 048
  3. EPIVIR [Suspect]
     Indication: HIV INFECTION
     Route: 048
  4. PENTAMIDINE [Suspect]
     Route: 055
  5. GANCICLOVIR [Suspect]
     Route: 031
     Dates: start: 20070222, end: 20070322
  6. VALGANCICLOVIR HCL [Suspect]
     Route: 048
     Dates: start: 20070323, end: 20070327
  7. ZERIT [Concomitant]
     Indication: HIV INFECTION
     Route: 048
  8. STOCRIN [Concomitant]
     Indication: HIV INFECTION
     Route: 048

REACTIONS (2)
  - BONE MARROW FAILURE [None]
  - MYCOBACTERIUM AVIUM COMPLEX INFECTION [None]
